FAERS Safety Report 9223825 (Version 2)
Quarter: 2013Q3

REPORT INFORMATION
  Report Type: Spontaneous
  Country: US (occurrence: US)
  Receive Date: 20130410
  Receipt Date: 20130718
  Transmission Date: 20140515
  Serious: Yes (Hospitalization, Other)
  Sender: FDA-Public Use
  Company Number: US-009507513-1108USA01225

PATIENT
  Sex: Female
  Weight: 67.12 kg

DRUGS (5)
  1. FOSAMAX [Suspect]
     Indication: PROPHYLAXIS
     Dosage: 70 MG, QW
     Route: 048
     Dates: start: 1996, end: 20080227
  2. MK-9359 [Concomitant]
     Dates: start: 199801
  3. PRAVASTATIN SODIUM [Concomitant]
     Dates: start: 199801
  4. SYNTHROID [Concomitant]
     Dosage: 0.75 MICROGRAM, QD
     Route: 048
     Dates: start: 200001
  5. RAMIPRIL [Concomitant]
     Dosage: 5 MG, UNK
     Dates: start: 199601

REACTIONS (29)
  - Femur fracture [Unknown]
  - Intramedullary rod insertion [Unknown]
  - Intramedullary rod insertion [Unknown]
  - Rotator cuff repair [Unknown]
  - Femur fracture [Unknown]
  - Anxiety [Unknown]
  - Depression [Unknown]
  - Drug administration error [Unknown]
  - Osteoporosis [Unknown]
  - Cough [Unknown]
  - Scoliosis [Unknown]
  - Hypothyroidism [Unknown]
  - Lumbar radiculopathy [Unknown]
  - Hypertension [Unknown]
  - Blood cholesterol increased [Unknown]
  - Impaired healing [Unknown]
  - Goitre [Unknown]
  - Thyroid neoplasm [Unknown]
  - Cardiac murmur [Unknown]
  - Sinus bradycardia [Unknown]
  - Supraventricular extrasystoles [Unknown]
  - Bundle branch block left [Unknown]
  - Left ventricular hypertrophy [Unknown]
  - Arthritis [Unknown]
  - Cataract operation [Unknown]
  - Cystocele [Unknown]
  - Urinary retention [Unknown]
  - Urine analysis abnormal [Unknown]
  - Osteoarthritis [Unknown]
